FAERS Safety Report 8920656 (Version 3)
Quarter: 2013Q2

REPORT INFORMATION
  Report Type: Report from Study
  Country: JP (occurrence: JP)
  Receive Date: 20121121
  Receipt Date: 20130508
  Transmission Date: 20140414
  Serious: Yes (Other)
  Sender: FDA-Public Use
  Company Number: JP-009507513-1211JPN006976

PATIENT
  Age: 61 Year
  Sex: Male
  Weight: 61 kg

DRUGS (8)
  1. PEGINTRON [Suspect]
     Indication: CHRONIC HEPATITIS C
     Dosage: 1.5 MICROGRAM PER KILOGRAM, QW
     Route: 058
     Dates: start: 20120710, end: 20120808
  2. PEGINTRON [Suspect]
     Dosage: 1.5 MICROGRAM PER KILOGRAM, QW
     Route: 058
     Dates: start: 20120822, end: 20120926
  3. REBETOL [Suspect]
     Indication: CHRONIC HEPATITIS C
     Dosage: 800 MG, QD
     Route: 048
     Dates: start: 20120710, end: 20120808
  4. REBETOL [Suspect]
     Dosage: 600 MG, QD
     Route: 048
     Dates: start: 20120822, end: 20120926
  5. TELAVIC [Suspect]
     Indication: CHRONIC HEPATITIS C
     Dosage: 2250 MG, QD
     Route: 048
     Dates: start: 20120710, end: 20120808
  6. TELAVIC [Suspect]
     Dosage: 1500 MG, QD
     Route: 048
     Dates: start: 20120822, end: 20120926
  7. ALOSITOL [Concomitant]
     Indication: PROPHYLAXIS
     Dosage: 100 MG, QD
     Route: 048
     Dates: start: 20120710, end: 20120807
  8. DERMOVATE [Concomitant]
     Indication: ADVERSE EVENT
     Dosage: Q.S; FORMULATION: EXT
     Route: 051

REACTIONS (4)
  - Sclerema [Recovered/Resolved]
  - Face oedema [Recovered/Resolved]
  - Rash [Recovering/Resolving]
  - Face oedema [Recovered/Resolved]
